FAERS Safety Report 10015023 (Version 1)
Quarter: 2014Q1

REPORT INFORMATION
  Report Type: Spontaneous
  Country: US (occurrence: US)
  Receive Date: 20140317
  Receipt Date: 20140317
  Transmission Date: 20141002
  Serious: Yes (Other)
  Sender: FDA-Public Use
  Company Number: US-ELI_LILLY_AND_COMPANY-US201403002732

PATIENT
  Sex: Female

DRUGS (5)
  1. HUMALOG 25% LISPRO, 75% NPL [Suspect]
     Indication: DIABETES MELLITUS
     Dosage: 100 U, BID
     Route: 065
  2. ALPRAZOLAM [Concomitant]
  3. LEVOTHYROXINE [Concomitant]
  4. GLIMEPIRIDE [Concomitant]
  5. DIGOXIN [Concomitant]

REACTIONS (2)
  - Ear neoplasm [Not Recovered/Not Resolved]
  - Hypoacusis [Not Recovered/Not Resolved]
